FAERS Safety Report 7776351-X (Version None)
Quarter: 2011Q3

REPORT INFORMATION
  Report Type: 
  Country: None (occurrence: None)
  Receive Date: 20110916
  Receipt Date: 20110912
  Transmission Date: 20111222
  Serious: Yes (Other)
  Sender: FDA-Public Use
  Company Number: 2011028314

PATIENT
  Age: 50 Year
  Sex: Female
  Weight: 106.5953 kg

DRUGS (44)
  1. KEPPRA [Concomitant]
  2. KLONOPIN [Concomitant]
  3. AZATHIOPRINE [Concomitant]
  4. TESSALON [Concomitant]
  5. ALAVERT [Concomitant]
  6. BL RANITIDINE (RANITIDINE) [Concomitant]
  7. INNOPRAN XL [Concomitant]
  8. DUONEB [Concomitant]
  9. LORATADINE [Concomitant]
  10. EVOXAC [Concomitant]
  11. PULMICORT [Concomitant]
  12. HIZENTRA [Suspect]
  13. HIZENTRA [Suspect]
  14. VICODIN [Concomitant]
  15. PLAQUENIL [Concomitant]
  16. BALANCE B (BIO-ORGANICS BALANCED B) [Concomitant]
  17. TRIAMTERENE HCTZ (DYAZIDE) [Concomitant]
  18. PULMICORT [Concomitant]
  19. MAXALT MLT (RIZATRIPTAN BENZOATE) [Concomitant]
  20. ZOLPIDEM [Concomitant]
  21. COUMADIN [Concomitant]
  22. NEOSTIGMINE (NEOSTIGMINE) [Concomitant]
  23. RESTASIS [Concomitant]
  24. PREDNISONE [Concomitant]
  25. TRAMADOL HCL [Concomitant]
  26. CELEBREX [Concomitant]
  27. COMBIVENT [Concomitant]
  28. BACLOFEN [Concomitant]
  29. PREVACID [Concomitant]
  30. VITAMIN D [Concomitant]
  31. ZOFRAN [Concomitant]
  32. RELPAX [Concomitant]
  33. BL MAGNESIUM (MAGNESIUM) [Concomitant]
  34. LIDODERM [Concomitant]
  35. HYDROXYZINE [Concomitant]
  36. MUCINEX [Concomitant]
  37. HIZENTRA [Suspect]
  38. SEROQUEIL (QUETIAPINE) [Concomitant]
  39. PROVIGIL [Concomitant]
  40. NORCO [Concomitant]
  41. HIZENTRA [Suspect]
     Indication: IMMUNODEFICIENCY COMMON VARIABLE
     Dosage: SEE IMAGE
     Route: 058
     Dates: start: 20110817
  42. HIZENTRA [Suspect]
     Indication: IMMUNODEFICIENCY COMMON VARIABLE
     Dosage: SEE IMAGE
     Route: 058
     Dates: start: 20101009
  43. HIZENTRA [Suspect]
     Indication: IMMUNODEFICIENCY COMMON VARIABLE
     Dosage: SEE IMAGE
     Route: 058
     Dates: start: 20110817
  44. METFORMIN HCL [Concomitant]

REACTIONS (4)
  - BRONCHITIS [None]
  - STREPTOCOCCAL INFECTION [None]
  - PNEUMONIA [None]
  - HIP ARTHROPLASTY [None]
